FAERS Safety Report 7912515-X (Version None)
Quarter: 2011Q4

REPORT INFORMATION
  Report Type: 
  Country: None (occurrence: None)
  Receive Date: 20111114
  Receipt Date: 20111109
  Transmission Date: 20120403
  Serious: No
  Sender: FDA-Public Use
  Company Number: US-PFIZER INC-2011275210

PATIENT
  Sex: Female

DRUGS (2)
  1. TIKOSYN [Suspect]
     Dosage: UNK
     Route: 048
     Dates: start: 20111021
  2. WARFARIN SODIUM [Concomitant]
     Dosage: UNK

REACTIONS (2)
  - HYPOTENSION [None]
  - HYPERTENSION [None]
